FAERS Safety Report 16925871 (Version 10)
Quarter: 2025Q4

REPORT INFORMATION
  Report Type: Spontaneous
  Country: JP (occurrence: JP)
  Receive Date: 20191016
  Receipt Date: 20251216
  Transmission Date: 20260117
  Serious: Yes (Hospitalization, Disabling, Other)
  Sender: AMGEN
  Company Number: JP-AMGEN-JPNSP2019170136

PATIENT
  Age: 93 Year
  Sex: Male
  Weight: 56 kg

DRUGS (9)
  1. EVENITY [Suspect]
     Active Substance: ROMOSOZUMAB-AQQG
     Indication: Osteoporosis
     Dosage: 210 MILLIGRAM
     Route: 058
     Dates: start: 20190530, end: 20190926
  2. ICOSAPENT ETHYL [Concomitant]
     Active Substance: ICOSAPENT ETHYL
     Indication: Peripheral arterial occlusive disease
     Dosage: 900 MILLIGRAM, BID
  3. ICOSAPENT ETHYL [Concomitant]
     Active Substance: ICOSAPENT ETHYL
     Indication: Hyperlipidaemia
  4. REBAMIPIDE [Concomitant]
     Active Substance: REBAMIPIDE
     Indication: Gastritis
     Dosage: 100 MILLIGRAM, BID
     Dates: start: 20150603, end: 20191007
  5. TAMSULOSIN HYDROCHLORIDE [Concomitant]
     Active Substance: TAMSULOSIN HYDROCHLORIDE
     Indication: Benign prostatic hyperplasia
     Dosage: 0.2 MILLIGRAM, QD
     Dates: start: 20190622, end: 20191007
  6. MAGNESIUM OXIDE [Concomitant]
     Active Substance: MAGNESIUM OXIDE
     Indication: Constipation
     Dosage: 330 MILLIGRAM, BID
     Dates: start: 20170530
  7. ALFACALCIDOL [Concomitant]
     Active Substance: ALFACALCIDOL
     Indication: Hypocalcaemia
     Dosage: 0.5 MICROGRAM, QD
     Dates: start: 20190530, end: 20191007
  8. EXELON [Concomitant]
     Active Substance: RIVASTIGMINE TARTRATE
     Dosage: 13.5 MILLIGRAM, QD
  9. CALCIUM ASPARTATE [Concomitant]
     Active Substance: CALCIUM ASPARTATE
     Indication: Prophylaxis
     Dosage: 200 MILLIGRAM, TID
     Dates: start: 20190530, end: 20191007

REACTIONS (2)
  - Peripheral artery occlusion [Not Recovered/Not Resolved]
  - Atrial fibrillation [Not Recovered/Not Resolved]

NARRATIVE: CASE EVENT DATE: 20191006
